FAERS Safety Report 8498566-8 (Version None)
Quarter: 2012Q3

REPORT INFORMATION
  Report Type: 
  Country: None (occurrence: None)
  Receive Date: 20120709
  Receipt Date: 20120626
  Transmission Date: 20120928
  Serious: No
  Sender: FDA-Public Use
  Company Number: US-AMGEN-USASP2012039519

PATIENT
  Age: 58 Year
  Sex: Female

DRUGS (1)
  1. ENBREL [Suspect]
     Indication: PSORIASIS
     Dosage: 50 MG, QWK
     Dates: start: 20030902

REACTIONS (8)
  - BACK PAIN [None]
  - BLOOD GLUCOSE ABNORMAL [None]
  - ACTIVITIES OF DAILY LIVING IMPAIRED [None]
  - MUSCULAR WEAKNESS [None]
  - CONTUSION [None]
  - DIABETES MELLITUS [None]
  - TREMOR [None]
  - FALL [None]
